FAERS Safety Report 14612452 (Version 1)
Quarter: 2018Q1

REPORT INFORMATION
  Report Type: Spontaneous
  Country: PL (occurrence: PL)
  Receive Date: 20180308
  Receipt Date: 20180308
  Transmission Date: 20180509
  Serious: Yes (Hospitalization)
  Sender: FDA-Public Use
  Company Number: PL-AUROBINDO-AUR-APL-2018-012072

PATIENT
  Age: 60 Year
  Sex: Male

DRUGS (8)
  1. RAMIPRIL. [Suspect]
     Active Substance: RAMIPRIL
     Dosage: 10 MILLIGRAM
  2. METHYLPREDNISOLONE. [Concomitant]
     Active Substance: METHYLPREDNISOLONE
     Dosage: 16 MILLIGRAM
  3. PARACETAMOL + TRAMADOL [Concomitant]
     Active Substance: ACETAMINOPHEN\TRAMADOL
  4. CARVEDILOL. [Suspect]
     Active Substance: CARVEDILOL
     Dosage: 25 MILLIGRAM
  5. METFORMIN [Concomitant]
     Active Substance: METFORMIN HYDROCHLORIDE
     Dosage: 1000 MILLIGRAM
  6. ACETYLSALICYLIC ACID [Suspect]
     Active Substance: ASPIRIN
     Dosage: 75 MILLIGRAM
  7. DILTIAZEM. [Concomitant]
     Active Substance: DILTIAZEM
     Dosage: 240 MILLIGRAM
  8. ROSUVASTATIN. [Concomitant]
     Active Substance: ROSUVASTATIN
     Dosage: 10 MILLIGRAM

REACTIONS (6)
  - Cyanosis [Recovered/Resolved]
  - Chest pain [Recovered/Resolved]
  - Arterial spasm [Recovered/Resolved]
  - Angina pectoris [Recovered/Resolved]
  - Paraesthesia [Recovered/Resolved]
  - Prinzmetal angina [Recovered/Resolved]
